FAERS Safety Report 8765474 (Version 5)
Quarter: 2012Q4

REPORT INFORMATION
  Report Type: 
  Country: ES (occurrence: ES)
  Receive Date: 20120831
  Receipt Date: 20121123
  Transmission Date: 20130627
  Serious: Yes (Other)
  Sender: FDA-Public Use
  Company Number: ES-PFIZER INC-2012210714

PATIENT
  Sex: Female

DRUGS (7)
  1. LYRICA [Suspect]
     Indication: GENERALIZED ANXIETY DISORDER
     Dosage: 75 mg, 2x/day
     Route: 048
     Dates: start: 201108, end: 20121016
  2. AMITRIPTYLINE HYDROCHLORIDE [Suspect]
     Indication: DEPRESSION
     Dosage: 25 mg, 3x/day
  3. AMITRIPTYLINE HYDROCHLORIDE [Suspect]
     Indication: ANXIETY
  4. AMITRIPTYLINE HYDROCHLORIDE [Suspect]
     Indication: NECK PAIN
  5. ALAPRYL [Concomitant]
     Indication: ANXIETY
     Dosage: 1 DF, 3x/day
     Dates: start: 201108, end: 201210
  6. ALAPRYL [Concomitant]
     Indication: DEPRESSION
  7. ALAPRYL [Concomitant]
     Indication: NECK PAIN

REACTIONS (10)
  - Nervous system disorder [Recovered/Resolved]
  - Memory impairment [Recovered/Resolved]
  - Speech disorder [Recovered/Resolved]
  - Weight increased [Not Recovered/Not Resolved]
  - Abdominal distension [Recovering/Resolving]
  - Fluid retention [Recovering/Resolving]
  - Constipation [Recovering/Resolving]
  - Flatulence [Recovering/Resolving]
  - Fatigue [Recovering/Resolving]
  - Hypoaesthesia [Recovering/Resolving]
